FAERS Safety Report 8534743-5 (Version None)
Quarter: 2012Q3

REPORT INFORMATION
  Report Type: 
  Country: None (occurrence: None)
  Receive Date: 20120724
  Receipt Date: 20120719
  Transmission Date: 20120928
  Serious: Yes (Hospitalization)
  Sender: FDA-Public Use
  Company Number: JP-GLAXOSMITHKLINE-B0816228A

PATIENT

DRUGS (2)
  1. ALPRAZOLAM [Suspect]
     Indication: ANXIETY DISORDER
     Dosage: 3.2MG PER DAY
     Route: 064
     Dates: end: 20120717
  2. PAXIL [Suspect]
     Indication: ANXIETY DISORDER
     Dosage: 20MG PER DAY
     Route: 064
     Dates: start: 20120525, end: 20120717

REACTIONS (4)
  - INFANTILE APNOEIC ATTACK [None]
  - DYSKINESIA NEONATAL [None]
  - FOETAL EXPOSURE DURING PREGNANCY [None]
  - DRUG WITHDRAWAL SYNDROME NEONATAL [None]
